FAERS Safety Report 22170084 (Version 1)
Quarter: 2023Q2

REPORT INFORMATION
  Report Type: Other
  Country: GB (occurrence: GB)
  Receive Date: 20230404
  Receipt Date: 20230404
  Transmission Date: 20230721
  Serious: Yes (Other)
  Sender: FDA-Public Use
  Company Number: GB-MHRA-MED-202303211933237760-HYSFT

PATIENT

DRUGS (1)
  1. MONTELUKAST SODIUM [Suspect]
     Active Substance: MONTELUKAST SODIUM
     Indication: Asthma
     Dosage: 10 MILLIGRAM, OD (10 MGS ONCE DAILY)
     Route: 065
     Dates: start: 20230222, end: 20230318

REACTIONS (5)
  - Weight increased [Not Recovered/Not Resolved]
  - Headache [Not Recovered/Not Resolved]
  - Chromaturia [Recovered/Resolved]
  - Dyspnoea [Unknown]
  - Fatigue [Unknown]

NARRATIVE: CASE EVENT DATE: 20230222
